FAERS Safety Report 21291280 (Version 2)
Quarter: 2022Q3

REPORT INFORMATION
  Report Type: Spontaneous
  Country: US (occurrence: US)
  Receive Date: 20220903
  Receipt Date: 20220913
  Transmission Date: 20221026
  Serious: No
  Sender: FDA-Public Use
  Company Number: US-TEVA-2022-US-2067654

PATIENT
  Age: 75 Year
  Sex: Male

DRUGS (1)
  1. LORAZEPAM [Suspect]
     Active Substance: LORAZEPAM
     Indication: Nocturia
     Route: 065
     Dates: start: 201211

REACTIONS (7)
  - Sedation [Unknown]
  - Anxiety [Unknown]
  - Feeling abnormal [Unknown]
  - Drug effect less than expected [Unknown]
  - Product prescribing issue [Unknown]
  - Wrong technique in product usage process [Unknown]
  - Product quality issue [Unknown]
